FAERS Safety Report 23235624 (Version 4)
Quarter: 2024Q1

REPORT INFORMATION
  Report Type: Spontaneous
  Country: US (occurrence: US)
  Receive Date: 20231128
  Receipt Date: 20240325
  Transmission Date: 20240409
  Serious: Yes (Other)
  Sender: FDA-Public Use
  Company Number: US-PFIZER INC-PV202300191220

PATIENT
  Age: 75 Year
  Sex: Female
  Weight: 104.7 kg

DRUGS (6)
  1. IBRANCE [Suspect]
     Active Substance: PALBOCICLIB
     Indication: Breast cancer metastatic
     Dosage: 100 MG, DAILY
     Route: 048
     Dates: start: 20230613, end: 2023
  2. IBRANCE [Suspect]
     Active Substance: PALBOCICLIB
     Indication: Metastatic neoplasm
     Dosage: TAKE 1 TABLET (75 MG) BY MOUTH DAILY FOR 21 DAYS. TAKE DAYS 1-21 OF A 28 DAY
     Route: 048
     Dates: start: 20230822, end: 20231212
  3. IBRANCE [Suspect]
     Active Substance: PALBOCICLIB
     Dosage: 100 MG DECREASE TO 75 MG 1 TAB PO (PER ORAL) DAILY X 21 DAYS
     Route: 048
     Dates: start: 202306, end: 202312
  4. ONDANSETRON [Concomitant]
     Active Substance: ONDANSETRON
     Indication: Nausea
     Dosage: TAKE 1 TABLET (8 MG) BY MOUTH DAILY AS NEEDED
     Route: 048
     Dates: start: 20230613
  5. ONDANSETRON [Concomitant]
     Active Substance: ONDANSETRON
     Indication: Vomiting
  6. CHOLECALCIFEROL [Concomitant]
     Active Substance: CHOLECALCIFEROL
     Dosage: TAKE 5,000 UNITS BY MOUTH DAILY
     Route: 048

REACTIONS (8)
  - Neutropenia [Recovered/Resolved]
  - White blood cell count decreased [Unknown]
  - Red blood cell count decreased [Unknown]
  - Mean cell volume increased [Unknown]
  - Lymphocyte count decreased [Unknown]
  - Platelet count decreased [Unknown]
  - Red cell distribution width increased [Unknown]
  - Neoplasm progression [Unknown]

NARRATIVE: CASE EVENT DATE: 20230711
